FAERS Safety Report 15829452 (Version 1)
Quarter: 2019Q1

REPORT INFORMATION
  Report Type: Spontaneous
  Country: US (occurrence: US)
  Receive Date: 20190115
  Receipt Date: 20190115
  Transmission Date: 20190417
  Serious: No
  Sender: FDA-Public Use
  Company Number: US-PERRIGO-18US006986

PATIENT
  Age: 70 Year
  Sex: Female
  Weight: 47.62 kg

DRUGS (2)
  1. TRETINOIN. [Suspect]
     Active Substance: TRETINOIN
     Indication: PROPHYLAXIS
     Dosage: SMALL AMOUNT, QHS
     Route: 061
     Dates: end: 2013
  2. TRETINOIN. [Suspect]
     Active Substance: TRETINOIN
     Indication: SKIN DISORDER
     Dosage: SMALL AMOUNT, QHS
     Route: 061
     Dates: start: 20180615, end: 20180629

REACTIONS (7)
  - Skin wrinkling [Not Recovered/Not Resolved]
  - Dry skin [Not Recovered/Not Resolved]
  - Off label use [Recovered/Resolved]
  - Application site pruritus [Not Recovered/Not Resolved]
  - Skin tightness [Not Recovered/Not Resolved]
  - Application site exfoliation [Not Recovered/Not Resolved]
  - Product administered to patient of inappropriate age [Recovered/Resolved]

NARRATIVE: CASE EVENT DATE: 2013
